FAERS Safety Report 26062126 (Version 1)
Quarter: 2025Q4

REPORT INFORMATION
  Report Type: Spontaneous
  Country: US (occurrence: US)
  Receive Date: 20251119
  Receipt Date: 20251119
  Transmission Date: 20260117
  Serious: No
  Sender: TEVA
  Company Number: US-ABBVIE-6532090

PATIENT
  Sex: Male

DRUGS (1)
  1. OXYTROL [Suspect]
     Active Substance: OXYBUTYNIN
     Indication: Hypertonic bladder
     Dosage: TRANSDERMAL SOLUTION
     Route: 062

REACTIONS (5)
  - Hypertonic bladder [Not Recovered/Not Resolved]
  - Drug ineffective [Unknown]
  - Administration site pruritus [Unknown]
  - Administration site erythema [Unknown]
  - Administration site irritation [Unknown]
